FAERS Safety Report 6705979-0 (Version None)
Quarter: 2010Q2

REPORT INFORMATION
  Report Type: 
  Country: None (occurrence: None)
  Receive Date: 20100423
  Receipt Date: 20100111
  Transmission Date: 20101027
  Serious: No
  Sender: FDA-Public Use
  Company Number: ALL1-2010-00124

PATIENT
  Age: 38 Year
  Sex: Female
  Weight: 117 kg

DRUGS (6)
  1. VYVANSE [Suspect]
     Indication: ATTENTION DEFICIT/HYPERACTIVITY DISORDER
     Dosage: 20 MG, 1X/DAY:QD, ORAL
     Route: 048
     Dates: start: 20090901, end: 20091201
  2. AMARYL (GLIMEPRIRIDE) [Concomitant]
  3. JANUVIA [Concomitant]
  4. CLARTIN /00413701/ (GLICLAZIDE [Concomitant]
  5. SINGULAIR /01362601/ (MONTELUKAST) [Concomitant]
  6. ALBUTEROL /00139501/ (SALBUTAMOL) [Concomitant]

REACTIONS (1)
  - THERAPEUTIC RESPONSE UNEXPECTED [None]
